FAERS Safety Report 10156760 (Version 1)
Quarter: 2014Q2

REPORT INFORMATION
  Report Type: Spontaneous
  Country: IT (occurrence: None)
  Receive Date: 20140505
  Receipt Date: 20140505
  Transmission Date: 20141212
  Serious: Yes (Hospitalization)
  Sender: FDA-Public Use
  Company Number: AUR-APL-2014-05189

PATIENT
  Age: 76 Year
  Sex: Male

DRUGS (9)
  1. ACICLOVIR (ACICLOVIR) [Suspect]
     Indication: CHEMOTHERAPY
     Dosage: (800 MG, 1 D), ORAL
     Route: 048
     Dates: start: 20140210, end: 20140316
  2. BACTRIM (BACTRIM) (SULFAMETHOXAZOLE, TRIMETHOPRIM) [Suspect]
     Indication: CHEMOTHERAPY
     Dosage: ( 2 DOSAGE FORMS, CYCLICAL), ORAL
     Route: 048
     Dates: start: 20140210, end: 20140310
  3. ALKERAN (MELPHALAN HYDROCHLORIDE) [Suspect]
     Indication: PLASMA CELL MYELOMA
     Dosage: (16 MG, 1 D), ORAL
     Route: 048
     Dates: start: 20140212, end: 20140215
  4. LEVOXACIN [Suspect]
     Indication: CHEMOTHERAPY
     Dosage: (500 MG, 1 D), ORAL
     Route: 048
     Dates: start: 20140210, end: 20140220
  5. FILGRASTIM (FILGRASTIM) [Suspect]
     Indication: CHEMOTHERAPY
     Route: 058
     Dates: start: 20140217, end: 20140221
  6. BORTEZOMIB (BORTEZOMIB) [Suspect]
     Indication: PLASMA CELL MYELOMA
     Dosage: (2.4 MG, CYCLICAL), UNKNOWN?
     Dates: start: 20140210, end: 20140313
  7. LASIX (FUROSEMIDE) [Concomitant]
  8. CARDIOASPIRIN (ACETYLSALICYLIC ACID) [Concomitant]
  9. RAMIPRIL (RAMIPRIL) [Concomitant]

REACTIONS (5)
  - Off label use [None]
  - Erythema [None]
  - Pruritus [None]
  - Rash [None]
  - Periorbital oedema [None]
